FAERS Safety Report 18924045 (Version 2)
Quarter: 2022Q1

REPORT INFORMATION
  Report Type: Spontaneous
  Country: US (occurrence: None)
  Receive Date: 20210222
  Receipt Date: 20220329
  Transmission Date: 20220423
  Serious: Yes (Other)
  Sender: FDA-Public Use
  Company Number: 2021A062065

PATIENT
  Sex: Female

DRUGS (6)
  1. NEXIUM [Suspect]
     Active Substance: ESOMEPRAZOLE MAGNESIUM
     Indication: Gastrooesophageal reflux disease
     Route: 048
     Dates: start: 2008, end: 2013
  2. NEXIUM [Suspect]
     Active Substance: ESOMEPRAZOLE MAGNESIUM
     Indication: Gastrooesophageal reflux disease
     Route: 048
     Dates: start: 200803, end: 201308
  3. FUROSEMIDE [Concomitant]
     Active Substance: FUROSEMIDE
     Indication: Diuretic therapy
     Dates: start: 2008, end: 2017
  4. LISINOPRIL [Concomitant]
     Active Substance: LISINOPRIL
     Indication: Blood pressure abnormal
     Dates: start: 2010, end: 2017
  5. METOPROLOL [Concomitant]
     Active Substance: METOPROLOL
     Indication: Blood pressure abnormal
     Dates: start: 2018, end: 2020
  6. ACETAMINOPHEN [Concomitant]
     Active Substance: ACETAMINOPHEN
     Indication: Pain
     Dates: start: 2019

REACTIONS (1)
  - Chronic kidney disease [Not Recovered/Not Resolved]
